FAERS Safety Report 4879060-X (Version None)
Quarter: 2005Q4

REPORT INFORMATION
  Report Type: 
  Country: None (occurrence: None)
  Receive Date: 20051212
  Receipt Date: 20050919
  Transmission Date: 20060501
  Serious: Yes (Hospitalization)
  Sender: FDA-Public Use
  Company Number: 142895USA

PATIENT
  Age: 72 Year
  Sex: Male

DRUGS (9)
  1. AMIODARONE [Suspect]
     Indication: ATRIAL FIBRILLATION
     Dosage: 100 MILLIGRAM BID ORAL
     Route: 048
     Dates: start: 20030101, end: 20041101
  2. ZOCOR [Concomitant]
  3. PROTONIX [Concomitant]
  4. METOPROLOL [Concomitant]
  5. FUROSEMIDE [Concomitant]
  6. COUMADIN [Concomitant]
  7. POTASSIUM CHLORIDE [Concomitant]
  8. MULTIVITAMIN [Concomitant]
  9. FOLIC ACID [Concomitant]

REACTIONS (4)
  - COUGH [None]
  - DYSPNOEA [None]
  - LUNG DISORDER [None]
  - PULMONARY FIBROSIS [None]
